FAERS Safety Report 6888118-5 (Version None)
Quarter: 2010Q3

REPORT INFORMATION
  Report Type: 
  Country: None (occurrence: None)
  Receive Date: 20100730
  Receipt Date: 20100721
  Transmission Date: 20110219
  Serious: Yes (Hospitalization)
  Sender: FDA-Public Use
  Company Number: US-JNJFOC-20100707523

PATIENT
  Sex: Female
  Weight: 88 kg

DRUGS (1)
  1. USTEKINUMAB [Suspect]
     Indication: PSORIASIS
     Route: 058

REACTIONS (1)
  - ESCHERICHIA URINARY TRACT INFECTION [None]
